FAERS Safety Report 6518545-7 (Version None)
Quarter: 2009Q4

REPORT INFORMATION
  Report Type: 
  Country: None (occurrence: None)
  Receive Date: 20091226
  Receipt Date: 20091218
  Transmission Date: 20100525
  Serious: Yes (Death, Hospitalization, Other)
  Sender: FDA-Public Use
  Company Number: JP-JNJFOC-20090502650

PATIENT
  Sex: Male
  Weight: 69 kg

DRUGS (25)
  1. FENTANYL-100 [Suspect]
     Indication: PAIN
     Route: 062
  2. FENTANYL-100 [Suspect]
     Route: 062
  3. FENTANYL-100 [Suspect]
     Route: 062
  4. FENTANYL-100 [Suspect]
     Route: 062
  5. FENTANYL-100 [Suspect]
     Route: 062
  6. FENTANYL-100 [Suspect]
     Route: 062
  7. FENTANYL-100 [Suspect]
     Route: 062
  8. FENTANYL-100 [Suspect]
     Route: 062
  9. FENTANYL-100 [Suspect]
     Route: 062
  10. FENTANYL-100 [Suspect]
     Route: 062
  11. FENTANYL-100 [Suspect]
     Route: 062
  12. FENTANYL-100 [Suspect]
     Route: 062
  13. FENTANYL-100 [Suspect]
     Route: 062
  14. FENTANYL-100 [Suspect]
     Route: 062
  15. FENTANYL-100 [Suspect]
     Route: 062
  16. MAGNESIUM OXIDE [Concomitant]
     Indication: CONSTIPATION
     Route: 048
  17. PURSENNID [Concomitant]
     Indication: CONSTIPATION
     Route: 048
  18. SENNOSIDE (UNSPECIFIED) [Concomitant]
     Indication: CONSTIPATION
     Route: 048
  19. RIVOTRIL [Concomitant]
     Indication: PAIN
     Route: 048
  20. BENZALIN [Concomitant]
     Indication: PAIN
     Route: 048
  21. GABAPEN [Concomitant]
     Indication: PAIN
     Route: 048
  22. TRYPTANOL [Concomitant]
     Indication: PAIN
     Route: 048
  23. BROTIZOLAM [Concomitant]
     Indication: PAIN
     Route: 048
  24. MYSLEE [Concomitant]
     Indication: PAIN
     Route: 048
  25. MORPHINE HYDROCHLORIDE [Concomitant]
     Indication: PAIN
     Route: 048

REACTIONS (3)
  - MELAENA [None]
  - PANCREATIC CARCINOMA [None]
  - SOMNOLENCE [None]
